FAERS Safety Report 13329232 (Version 3)
Quarter: 2017Q1

REPORT INFORMATION
  Report Type: Report from Study
  Country: JP (occurrence: JP)
  Receive Date: 20170313
  Receipt Date: 20170322
  Transmission Date: 20170428
  Serious: Yes (Death, Life-Threatening, Other)
  Sender: FDA-Public Use
  Company Number: JP-CELGENEUS-JPN-2015074642

PATIENT
  Age: 33 Year
  Sex: Female

DRUGS (20)
  1. LENADEX [Suspect]
     Active Substance: DEXAMETHASONE ACETATE
     Dosage: 40 MILLIGRAM
     Route: 048
     Dates: start: 20150915, end: 20151005
  2. LENADEX [Suspect]
     Active Substance: DEXAMETHASONE ACETATE
     Dosage: 40 MILLIGRAM
     Route: 048
     Dates: start: 20151006, end: 20151010
  3. FEBURIC [Concomitant]
     Active Substance: FEBUXOSTAT
     Indication: PRODUCT USED FOR UNKNOWN INDICATION
     Route: 048
  4. LENADEX [Suspect]
     Active Substance: DEXAMETHASONE ACETATE
     Indication: PLASMA CELL MYELOMA RECURRENT
     Route: 065
     Dates: start: 20150601, end: 20150628
  5. POMALYST [Suspect]
     Active Substance: POMALIDOMIDE
     Dosage: 4 MILLIGRAM
     Route: 048
     Dates: start: 20150811, end: 20150831
  6. POMALYST [Suspect]
     Active Substance: POMALIDOMIDE
     Dosage: 4 MILLIGRAM
     Route: 048
     Dates: start: 20151006, end: 20151010
  7. BORTEZOMIB [Concomitant]
     Active Substance: BORTEZOMIB
     Indication: PLASMA CELL MYELOMA
     Route: 065
     Dates: start: 201504
  8. BORTEZOMIB [Concomitant]
     Active Substance: BORTEZOMIB
     Route: 065
     Dates: start: 20150601, end: 20150628
  9. LENADEX [Suspect]
     Active Substance: DEXAMETHASONE ACETATE
     Dosage: 20 MILLIGRAM
     Route: 048
     Dates: start: 20150908, end: 20150914
  10. ASACOL [Concomitant]
     Active Substance: MESALAMINE
     Indication: PRODUCT USED FOR UNKNOWN INDICATION
     Route: 048
  11. ACICLOVIR [Concomitant]
     Active Substance: ACYCLOVIR
     Indication: PROPHYLAXIS
     Route: 048
  12. NEXIUM [Concomitant]
     Active Substance: ESOMEPRAZOLE MAGNESIUM
     Indication: PROPHYLAXIS
     Route: 048
  13. BACTRAMIN [Concomitant]
     Active Substance: SULFAMETHOXAZOLE\TRIMETHOPRIM
     Indication: PROPHYLAXIS
     Route: 048
  14. POMALYST [Suspect]
     Active Substance: POMALIDOMIDE
     Indication: PLASMA CELL MYELOMA RECURRENT
     Dosage: 4 MILLIGRAM
     Route: 048
     Dates: start: 20150714, end: 20150803
  15. POMALYST [Suspect]
     Active Substance: POMALIDOMIDE
     Dosage: 4 MILLIGRAM
     Route: 048
     Dates: start: 20150908, end: 20150928
  16. LENADEX [Suspect]
     Active Substance: DEXAMETHASONE ACETATE
     Route: 065
     Dates: start: 201507
  17. LENADEX [Suspect]
     Active Substance: DEXAMETHASONE ACETATE
     Dosage: 20 MILLIGRAM
     Route: 048
     Dates: start: 20150811, end: 20150831
  18. FLUCONAZOLE. [Concomitant]
     Active Substance: FLUCONAZOLE
     Indication: PROPHYLAXIS
     Route: 048
  19. REVLIMID [Suspect]
     Active Substance: LENALIDOMIDE
     Indication: PLASMA CELL MYELOMA
     Route: 048
     Dates: start: 20150601, end: 20150628
  20. ASPIRIN. [Concomitant]
     Active Substance: ASPIRIN
     Indication: PROPHYLAXIS
     Dosage: 100 MILLIGRAM
     Route: 048
     Dates: start: 20150729

REACTIONS (5)
  - Blood uric acid increased [Unknown]
  - Plasma cell myeloma [Fatal]
  - Neutrophil count decreased [Unknown]
  - Neutropenia [Recovered/Resolved]
  - Protein urine present [Unknown]

NARRATIVE: CASE EVENT DATE: 20150721
